FAERS Safety Report 4894966-3 (Version None)
Quarter: 2006Q1

REPORT INFORMATION
  Report Type: 
  Country: None (occurrence: None)
  Receive Date: 20060130
  Receipt Date: 20050524
  Transmission Date: 20060701
  Serious: No
  Sender: FDA-Public Use
  Company Number: US-BRISTOL-MYERS SQUIBB COMPANY-12980488

PATIENT
  Age: 63 Year
  Sex: Male
  Weight: 91 kg

DRUGS (6)
  1. GLUCOPHAGE [Suspect]
     Indication: DIABETES MELLITUS
     Dosage: DURATION OF THERAPY - 6 - 8 YEARS
  2. ACCUPRIL [Concomitant]
  3. LIPITOR [Concomitant]
  4. NIASPAN [Concomitant]
  5. SURFAK [Concomitant]
  6. VITAMINS + MINERALS [Concomitant]

REACTIONS (1)
  - ERYTHEMA [None]
